FAERS Safety Report 9036344 (Version 2)
Quarter: 2013Q1

REPORT INFORMATION
  Report Type: Spontaneous
  Country: GB (occurrence: None)
  Receive Date: 20130114
  Receipt Date: 20130206
  Transmission Date: 20140127
  Serious: Yes (Hospitalization)
  Sender: FDA-Public Use
  Company Number: FK201300010

PATIENT
  Age: 73 Year
  Sex: Female

DRUGS (4)
  1. PIPERACILLIN SODIUM W/TAZOBACTAM SODIUM [Suspect]
     Route: 042
     Dates: end: 20110504
  2. CIPROFLOXACIN [Suspect]
     Dates: start: 20110215, end: 20110303
  3. OMEPRAZOLE [Suspect]
  4. TAZOCIN [Suspect]
     Dates: start: 20110211, end: 20110215

REACTIONS (1)
  - Clostridium difficile infection [None]
